FAERS Safety Report 23444077 (Version 1)
Quarter: 2024Q1

REPORT INFORMATION
  Report Type: Spontaneous
  Country: IT (occurrence: None)
  Receive Date: 20240125
  Receipt Date: 20240125
  Transmission Date: 20240410
  Serious: Yes (Other)
  Sender: FDA-Public Use
  Company Number: 2024A013165

PATIENT
  Age: 44 Year
  Sex: Female
  Weight: 101 kg

DRUGS (1)
  1. FASENRA [Suspect]
     Active Substance: BENRALIZUMAB
     Indication: Asthma
     Dosage: FASENRA 30 MG SOLUTION FOR INJECTION IN A PRE-FILLED SYRINGE. DOSAGE SCHEDULE: 30 MG EVERY 8 WEEKS
     Route: 058
     Dates: start: 201902, end: 20231231

REACTIONS (1)
  - Asthmatic crisis [Not Recovered/Not Resolved]

NARRATIVE: CASE EVENT DATE: 20230101
